FAERS Safety Report 23721448 (Version 3)
Quarter: 2024Q2

REPORT INFORMATION
  Report Type: Report from Study
  Country: CA (occurrence: CA)
  Receive Date: 20240409
  Receipt Date: 20240501
  Transmission Date: 20240715
  Serious: Yes (Hospitalization, Other)
  Sender: FDA-Public Use
  Company Number: CA-SA-SAC20240223000988

PATIENT
  Age: 65 Year
  Sex: Male

DRUGS (18)
  1. DUPILUMAB [Suspect]
     Active Substance: DUPILUMAB
     Indication: Dermatitis atopic
     Dosage: 600 MG, 1X
     Route: 058
     Dates: start: 20231219, end: 20231219
  2. DUPILUMAB [Suspect]
     Active Substance: DUPILUMAB
     Dosage: 300 MG, QOW
     Route: 058
     Dates: start: 202401
  3. OMNARIS [Concomitant]
     Active Substance: CICLESONIDE
     Dosage: 2 DF, QD
  4. LUMIGAN [Concomitant]
     Active Substance: BIMATOPROST
  5. BETNOVATE [Concomitant]
     Active Substance: BETAMETHASONE
  6. ROSUVASTATIN [Concomitant]
     Active Substance: ROSUVASTATIN
     Dosage: 40 MG, QD
  7. PERINDOPRIL ERBUMINE [Concomitant]
     Active Substance: PERINDOPRIL ERBUMINE
     Dosage: 2 MG, QD
     Route: 048
  8. METFORMIN HYDROCHLORIDE [Concomitant]
     Active Substance: METFORMIN HYDROCHLORIDE
     Dosage: 500 MG, QD
     Route: 048
  9. METFORMIN HYDROCHLORIDE [Concomitant]
     Active Substance: METFORMIN HYDROCHLORIDE
     Dosage: 2 DF, QD
     Route: 048
  10. METFORMIN HYDROCHLORIDE [Concomitant]
     Active Substance: METFORMIN HYDROCHLORIDE
     Dosage: 3 DF, QD
     Route: 048
  11. METFORMIN HYDROCHLORIDE [Concomitant]
     Active Substance: METFORMIN HYDROCHLORIDE
     Dosage: 2 DF, BID
     Route: 048
  12. BENADRYL [Concomitant]
     Active Substance: DIPHENHYDRAMINE HYDROCHLORIDE
     Dosage: BENADRYL 25MG TABLET (1 TAB Q. HS)
  13. BISOPROLOL FUMARATE [Concomitant]
     Active Substance: BISOPROLOL FUMARATE
     Dosage: 10 MG, QD
  14. ROSUVASTATIN CALCIUM [Concomitant]
     Active Substance: ROSUVASTATIN CALCIUM
     Dosage: 40 MG, QD
     Route: 048
  15. VENTOLIN HFA [Concomitant]
     Active Substance: ALBUTEROL SULFATE
     Dosage: VENTOLIN HFA 100MCG INHALER (1 SPRAY EVERY 4 TO 6 HOURS AS NEEDED)
  16. CLOBETASOL PROPIONATE [Concomitant]
     Active Substance: CLOBETASOL PROPIONATE
     Dosage: CLOBETASOL PROPIONATE 0.05% TOPICAL CREAM (ONE APPLICATION BID)
  17. ASPIRIN [Concomitant]
     Active Substance: ASPIRIN
     Dosage: ASPIRIN 81MG TABLET
  18. LORATADINE [Concomitant]
     Active Substance: LORATADINE
     Dosage: 10 MG, BID
     Route: 048

REACTIONS (17)
  - Renal failure [Unknown]
  - Hospitalisation [Unknown]
  - Visual impairment [Unknown]
  - Food aversion [Unknown]
  - Dry mouth [Unknown]
  - Diarrhoea [Unknown]
  - Influenza [Unknown]
  - Decreased appetite [Unknown]
  - Abnormal loss of weight [Unknown]
  - Haematuria [Unknown]
  - Urinary casts [Unknown]
  - Urine albumin/creatinine ratio increased [Unknown]
  - Chromaturia [Unknown]
  - Blood urea decreased [Unknown]
  - Infection [Recovering/Resolving]
  - Dry eye [Unknown]
  - Therapeutic product effect incomplete [Unknown]

NARRATIVE: CASE EVENT DATE: 20240311
